FAERS Safety Report 8339759-X (Version None)
Quarter: 2012Q2

REPORT INFORMATION
  Report Type: 
  Country: None (occurrence: None)
  Receive Date: 20120507
  Receipt Date: 20120504
  Transmission Date: 20120825
  Serious: No
  Sender: FDA-Public Use
  Company Number: US-BAYER-2012-043658

PATIENT
  Age: 29 Year
  Sex: Female

DRUGS (4)
  1. BETASERON [Suspect]
     Dosage: 0.3 MG, UNK
     Dates: start: 20120201
  2. ACETAMINOPHEN [Concomitant]
     Dosage: 650 MG, TID
  3. IBUPROFEN (ADVIL) [Concomitant]
     Dosage: 200 MG
  4. PROAIR HFA [Concomitant]

REACTIONS (1)
  - HEADACHE [None]
